FAERS Safety Report 20849996 (Version 3)
Quarter: 2022Q3

REPORT INFORMATION
  Report Type: Spontaneous
  Country: US (occurrence: US)
  Receive Date: 20220519
  Receipt Date: 20220912
  Transmission Date: 20221027
  Serious: No
  Sender: FDA-Public Use
  Company Number: US-PFIZER INC-202200708574

PATIENT
  Age: 69 Year
  Sex: Female

DRUGS (13)
  1. IBRANCE [Suspect]
     Active Substance: PALBOCICLIB
     Dosage: 125 MG, CYCLIC (DAILY FOR 21 DAYS ON THEN 7 DAYS OFF)
     Route: 048
     Dates: start: 20220321
  2. METFORMIN HYDROCHLORIDE [Suspect]
     Active Substance: METFORMIN HYDROCHLORIDE
     Dosage: UNK
  3. DOXYCYCLINE HYCLATE [Concomitant]
     Active Substance: DOXYCYCLINE HYCLATE
     Dosage: UNK
  4. MEBENDAZOLE [Concomitant]
     Active Substance: MEBENDAZOLE
     Dosage: UNK
  5. WELLBUTRIN SR [Concomitant]
     Active Substance: BUPROPION HYDROCHLORIDE
     Dosage: UNK
  6. ANASTROZOLE [Concomitant]
     Active Substance: ANASTROZOLE
     Dosage: UNK
  7. LOSARTAN POTASSIUM [Concomitant]
     Active Substance: LOSARTAN POTASSIUM
     Dosage: UNK
  8. COLLAGENASE [Concomitant]
     Active Substance: COLLAGENASE CLOSTRIDIUM HISTOLYTICUM
     Dosage: UNK
  9. HERCEPTIN [Concomitant]
     Active Substance: TRASTUZUMAB
     Dosage: UNK
  10. COLLAGEN HYDROLYSATE [Concomitant]
     Dosage: UNK
  11. CHAGA [Concomitant]
     Dosage: UNK
  12. REISHI [GANODERMA LUCIDUM] [Concomitant]
     Dosage: UNK
  13. TURKEY TAIL MUSHROOM [Concomitant]
     Dosage: UNK

REACTIONS (7)
  - Diarrhoea [Unknown]
  - Weight decreased [Unknown]
  - Hypotension [Unknown]
  - Dizziness [Unknown]
  - White blood cell count decreased [Unknown]
  - Decreased appetite [Unknown]
  - Tumour marker increased [Unknown]

NARRATIVE: CASE EVENT DATE: 20220101
